FAERS Safety Report 6912728-X (Version None)
Quarter: 2010Q3

REPORT INFORMATION
  Report Type: 
  Country: None (occurrence: None)
  Receive Date: 20100806
  Receipt Date: 20081014
  Transmission Date: 20110219
  Serious: No
  Sender: FDA-Public Use
  Company Number: US-PFIZER INC-2008073059

PATIENT
  Sex: Female
  Weight: 76.363 kg

DRUGS (4)
  1. DETROL LA [Suspect]
     Indication: HYPERTONIC BLADDER
     Dates: start: 20080101
  2. INSULIN [Concomitant]
  3. AMLODIPINE BESYLATE [Concomitant]
  4. CALCIUM [Concomitant]

REACTIONS (1)
  - POLLAKIURIA [None]
